FAERS Safety Report 5828249-1 (Version None)
Quarter: 2008Q3

REPORT INFORMATION
  Report Type: 
  Country: None (occurrence: None)
  Receive Date: 20080730
  Receipt Date: 20080730
  Transmission Date: 20090109
  Serious: Yes (Congenital Anomaly)
  Sender: FDA-Public Use
  Company Number: None

PATIENT
  Sex: Female
  Weight: 68.0396 kg

DRUGS (1)
  1. RITALIN [Suspect]
     Dosage: 10MG 8 QD
     Dates: start: 19990101

REACTIONS (20)
  - ANGER [None]
  - APATHY [None]
  - ASTHENIA [None]
  - COGNITIVE DISORDER [None]
  - COORDINATION ABNORMAL [None]
  - DEPRESSION [None]
  - DISTURBANCE IN ATTENTION [None]
  - DIZZINESS [None]
  - FATIGUE [None]
  - FEELING ABNORMAL [None]
  - FRUSTRATION [None]
  - HYPERSOMNIA [None]
  - LETHARGY [None]
  - MEMORY IMPAIRMENT [None]
  - PHARMACEUTICAL PRODUCT COMPLAINT [None]
  - SELF ESTEEM DECREASED [None]
  - STOMACH DISCOMFORT [None]
  - THERAPEUTIC RESPONSE UNEXPECTED WITH DRUG SUBSTITUTION [None]
  - THERMAL BURN [None]
  - THINKING ABNORMAL [None]
